FAERS Safety Report 6863434-1 (Version None)
Quarter: 2010Q3

REPORT INFORMATION
  Report Type: 
  Country: None (occurrence: None)
  Receive Date: 20100721
  Receipt Date: 20100712
  Transmission Date: 20110219
  Serious: Yes (Other)
  Sender: FDA-Public Use
  Company Number: AT-ABBOTT-10P-009-0656581-00

PATIENT
  Sex: Male
  Weight: 75 kg

DRUGS (1)
  1. HUMIRA [Suspect]
     Indication: CROHN'S DISEASE
     Dosage: INITIAL DOSE: 160MG/80MG DOSE COMMITMENT: 40MG EOW
     Route: 058
     Dates: start: 20091201

REACTIONS (1)
  - ALOPECIA [None]
